FAERS Safety Report 14149311 (Version 1)
Quarter: 2017Q4

REPORT INFORMATION
  Report Type: Spontaneous
  Country: JP (occurrence: JP)
  Receive Date: 20171101
  Receipt Date: 20171101
  Transmission Date: 20180321
  Serious: Yes (Other)
  Sender: FDA-Public Use
  Company Number: JP-TEVA-821714ROM

PATIENT
  Sex: Female
  Weight: 1.03 kg

DRUGS (3)
  1. HEPARIN [Suspect]
     Active Substance: HEPARIN SODIUM
     Dosage: 15000 IU (INTERNATIONAL UNIT) DAILY;
     Route: 064
  2. ASPIRIN. [Suspect]
     Active Substance: ASPIRIN
     Indication: ANTICOAGULANT THERAPY
     Dosage: 81 MILLIGRAM DAILY;
     Route: 064
  3. HEPARIN [Suspect]
     Active Substance: HEPARIN SODIUM
     Indication: ANTICOAGULANT THERAPY
     Dosage: 10000 IU (INTERNATIONAL UNIT) DAILY;
     Route: 064

REACTIONS (4)
  - Foetal exposure during pregnancy [Unknown]
  - Live birth [Unknown]
  - Nonreassuring foetal heart rate pattern [Unknown]
  - Foetal growth restriction [Unknown]
